FAERS Safety Report 5263619-4 (Version None)
Quarter: 2007Q1

REPORT INFORMATION
  Report Type: 
  Country: None (occurrence: None)
  Receive Date: 20070312
  Receipt Date: 20070312
  Transmission Date: 20070707
  Serious: No
  Sender: FDA-Public Use
  Company Number: None

PATIENT

DRUGS (2)
  1. SIMVASTATIN [Suspect]
     Dosage: TABLET
  2. SIMETHICONE [Suspect]
     Dosage: TABLET

REACTIONS (5)
  - DRUG DISPENSING ERROR [None]
  - DRUG EXPOSURE DURING PREGNANCY [None]
  - DYSGEUSIA [None]
  - MEDICATION ERROR [None]
  - WRONG DRUG ADMINISTERED [None]
